FAERS Safety Report 23550301 (Version 1)
Quarter: 2024Q1

REPORT INFORMATION
  Report Type: Spontaneous
  Country: AU (occurrence: AU)
  Receive Date: 20240221
  Receipt Date: 20240221
  Transmission Date: 20240409
  Serious: Yes (Other)
  Sender: FDA-Public Use
  Company Number: AU-JNJFOC-20240238177

PATIENT
  Age: 47 Year
  Sex: Female

DRUGS (9)
  1. TOPAMAX [Suspect]
     Active Substance: TOPIRAMATE
     Indication: Headache
     Route: 065
  2. ACETAZOLAMIDE [Suspect]
     Active Substance: ACETAZOLAMIDE
     Indication: Headache
     Route: 065
  3. AMITRIPTYLINE [Suspect]
     Active Substance: AMITRIPTYLINE
     Indication: Headache
     Route: 065
  4. CELECOXIB [Suspect]
     Active Substance: CELECOXIB
     Indication: Headache
     Route: 065
  5. GABAPENTIN [Suspect]
     Active Substance: GABAPENTIN
     Indication: Headache
     Route: 065
  6. INDOMETHACIN [Suspect]
     Active Substance: INDOMETHACIN
     Indication: Headache
     Route: 048
  7. INDOMETHACIN [Suspect]
     Active Substance: INDOMETHACIN
     Route: 048
  8. MELATONIN [Suspect]
     Active Substance: MELATONIN
     Indication: Headache
     Route: 065
  9. VERAPAMIL [Suspect]
     Active Substance: VERAPAMIL HYDROCHLORIDE
     Indication: Headache
     Route: 065

REACTIONS (4)
  - Acute kidney injury [Unknown]
  - Renal impairment [Recovered/Resolved]
  - Adverse drug reaction [Unknown]
  - Drug ineffective [Unknown]
